FAERS Safety Report 9726137 (Version 1)
Quarter: 2013Q4

REPORT INFORMATION
  Report Type: Report from Study
  Country: CA (occurrence: CA)
  Receive Date: 20131203
  Receipt Date: 20131203
  Transmission Date: 20140711
  Serious: Yes (Hospitalization)
  Sender: FDA-Public Use
  Company Number: CA-JNJFOC-20131118046

PATIENT
  Age: 54 Year
  Sex: Female
  Weight: 115 kg

DRUGS (1)
  1. REMICADE [Suspect]
     Indication: PYODERMA GANGRENOSUM
     Route: 042
     Dates: start: 20120828

REACTIONS (2)
  - Gastric bypass [Unknown]
  - Off label use [Unknown]
